FAERS Safety Report 8044275-9 (Version None)
Quarter: 2012Q1

REPORT INFORMATION
  Report Type: 
  Country: None (occurrence: None)
  Receive Date: 20120111
  Receipt Date: 20120111
  Transmission Date: 20120608
  Serious: No
  Sender: FDA-Public Use
  Company Number: None

PATIENT
  Age: 53 Year
  Sex: Male
  Weight: 108.1 kg

DRUGS (1)
  1. INCIVEK [Suspect]
     Indication: HEPATITIS C
     Dosage: 375 MG TID PO
     Route: 048
     Dates: start: 20110915

REACTIONS (4)
  - RASH [None]
  - ANORECTAL DISCOMFORT [None]
  - PRURITUS [None]
  - URTICARIA [None]
